FAERS Safety Report 6680986-5 (Version None)
Quarter: 2010Q2

REPORT INFORMATION
  Report Type: 
  Country: None (occurrence: None)
  Receive Date: 20100414
  Receipt Date: 20100406
  Transmission Date: 20101027
  Serious: Yes (Hospitalization)
  Sender: FDA-Public Use
  Company Number: US-WYE-H14474410

PATIENT
  Sex: Male
  Weight: 61.74 kg

DRUGS (14)
  1. RAPAMUNE [Suspect]
     Indication: ACUTE GRAFT VERSUS HOST DISEASE IN SKIN
     Route: 050
  2. BACTRIM [Concomitant]
     Dosage: UNSPECIFIED DOSE 3X/WEEK
     Route: 042
  3. URSODEOXYCHOLIC ACID [Concomitant]
     Route: 050
  4. PROTONIX [Concomitant]
     Dosage: 40 MG
     Route: 042
  5. MICAFUNGIN SODIUM [Concomitant]
     Route: 042
  6. CELLCEPT [Concomitant]
     Route: 042
  7. DILAUDID [Concomitant]
     Indication: PAIN
     Dosage: 1 VIA CONTINOUS INTRAVENOUS DRIP AND 1 MG IV EVERY 2 HOURS AS NEEDED
     Route: 042
  8. ZOFRAN [Concomitant]
     Indication: VOMITING
     Dosage: 4 MG EVERY 6 HOURS AS NEEDED
     Route: 042
  9. ZOFRAN [Concomitant]
     Indication: NAUSEA
  10. LOPRESSOR [Concomitant]
     Route: 042
  11. HYDROCORTISONE [Concomitant]
     Route: 042
  12. ACYCLOVIR SODIUM [Concomitant]
     Route: 042
  13. OSMOLITE [Concomitant]
     Dosage: 20
     Route: 050
  14. LOVENOX [Concomitant]
     Route: 058

REACTIONS (2)
  - DRUG DOSE OMISSION [None]
  - GASTROINTESTINAL STOMA COMPLICATION [None]
